FAERS Safety Report 6719432-1 (Version None)
Quarter: 2010Q2

REPORT INFORMATION
  Report Type: 
  Country: None (occurrence: None)
  Receive Date: 20100506
  Receipt Date: 20100403
  Transmission Date: 20101027
  Serious: Yes (Hospitalization)
  Sender: FDA-Public Use
  Company Number: UTC-001065

PATIENT
  Age: 66 Year
  Sex: Female

DRUGS (14)
  1. REMODULIN [Suspect]
     Indication: PULMONARY HYPERTENSION
     Dosage: 92.16 UG/KG (0.064 UG/KG, 1 IN 1 MIN) SUBCUTANEOUS
     Route: 058
     Dates: start: 20080422
  2. BOSENTAN (BOSENTAN) (125 MILLIGRAM, TABLETS) [Suspect]
     Indication: PULMONARY HYPERTENSION
     Dosage: 250MG (125 MG, 2 IN 1 D), ORAL
     Route: 048
     Dates: start: 20080324
  3. SILDENAFIL (SINLDENAFIL) [Concomitant]
  4. LIPITOR [Concomitant]
  5. PROTONIX [Concomitant]
  6. DYAZIDE [Concomitant]
  7. LIDODERM [Concomitant]
  8. POTASSIUM (POTASSIUM) [Concomitant]
  9. ALBUTEROL [Concomitant]
  10. LASIX [Concomitant]
  11. FLUTICASONE PROPIONATE [Concomitant]
  12. WARFARIN SODIUM [Concomitant]
  13. LOPERAMIDE W/SIMETICONE (LOPERAMIDE W/SIMETICONE) [Concomitant]
  14. OXYGEN (OXYGEN) [Concomitant]

REACTIONS (3)
  - DEHYDRATION [None]
  - DIARRHOEA [None]
  - DIZZINESS [None]
